FAERS Safety Report 6321642-2 (Version None)
Quarter: 2009Q3

REPORT INFORMATION
  Report Type: 
  Country: None (occurrence: None)
  Receive Date: 20090821
  Receipt Date: 20090821
  Transmission Date: 20100115
  Serious: Yes (Life-Threatening)
  Sender: FDA-Public Use
  Company Number: None

PATIENT
  Age: 76 Year
  Sex: Female
  Weight: 59.8748 kg

DRUGS (2)
  1. BONIVA [Suspect]
     Indication: BONE DISORDER
     Dosage: 1 TABLET ONCE MONTHLY 1ST DAY OF EACH MONTH
  2. BONIVA [Suspect]
     Indication: OSTEOPOROSIS
     Dosage: 1 TABLET ONCE MONTHLY 1ST DAY OF EACH MONTH

REACTIONS (7)
  - DIZZINESS [None]
  - DYSPEPSIA [None]
  - FALL [None]
  - NAUSEA [None]
  - PAIN IN EXTREMITY [None]
  - SKELETAL INJURY [None]
  - SYNCOPE [None]
